FAERS Safety Report 8588686-1 (Version None)
Quarter: 2012Q3

REPORT INFORMATION
  Report Type: 
  Country: None (occurrence: None)
  Receive Date: 20120813
  Receipt Date: 20120810
  Transmission Date: 20120928
  Serious: Yes (Other)
  Sender: FDA-Public Use
  Company Number: PHHY2012CA067097

PATIENT
  Sex: Female

DRUGS (1)
  1. SANDOSTATIN [Suspect]
     Indication: ANGIODYSPLASIA
     Route: 058
     Dates: start: 20120801

REACTIONS (2)
  - NAUSEA [None]
  - BLOOD PRESSURE DECREASED [None]
